FAERS Safety Report 8231106-7 (Version None)
Quarter: 2012Q1

REPORT INFORMATION
  Report Type: 
  Country: None (occurrence: None)
  Receive Date: 20120322
  Receipt Date: 20120322
  Transmission Date: 20120608
  Serious: Yes (Other)
  Sender: FDA-Public Use
  Company Number: None

PATIENT
  Age: 46 Year
  Sex: Female
  Weight: 58.967 kg

DRUGS (2)
  1. ZANAFLEX [Suspect]
     Indication: SLEEP DISORDER
     Dates: start: 20120308, end: 20120321
  2. ZANAFLEX [Suspect]
     Indication: MUSCLE RELAXANT THERAPY
     Dates: start: 20120308, end: 20120321

REACTIONS (9)
  - MUSCLE SPASMS [None]
  - MUSCLE TIGHTNESS [None]
  - MUSCULAR WEAKNESS [None]
  - SKIN WRINKLING [None]
  - SOCIAL PHOBIA [None]
  - HYPOTONIA [None]
  - DEFORMITY [None]
  - DRUG EFFECT DECREASED [None]
  - ANXIETY [None]
